FAERS Safety Report 7938069-X (Version None)
Quarter: 2011Q4

REPORT INFORMATION
  Report Type: 
  Country: None (occurrence: None)
  Receive Date: 20111123
  Receipt Date: 20111121
  Transmission Date: 20120403
  Serious: Yes (Hospitalization)
  Sender: FDA-Public Use
  Company Number: IT-BAYER-2011-112406

PATIENT
  Age: 59 Year
  Sex: Male

DRUGS (2)
  1. CIPROFLAXACIN [Suspect]
     Indication: BRONCHITIS
     Dosage: DAILY DOSE 500 MG
     Route: 048
     Dates: start: 20111013, end: 20111018
  2. ALBUTEROL SULFATE [Suspect]
     Dosage: DAILY DOSE 5 GTT
     Route: 055
     Dates: start: 20111018, end: 20111018

REACTIONS (4)
  - FACE OEDEMA [None]
  - LIP OEDEMA [None]
  - RASH ERYTHEMATOUS [None]
  - RESPIRATORY FAILURE [None]
